FAERS Safety Report 5080624-1 (Version None)
Quarter: 2006Q3

REPORT INFORMATION
  Report Type: 
  Country: None (occurrence: None)
  Receive Date: 20060814
  Receipt Date: 20060814
  Transmission Date: 20061208
  Serious: Yes (Hospitalization)
  Sender: FDA-Public Use
  Company Number: None

PATIENT
  Sex: Male
  Weight: 141 kg

DRUGS (10)
  1. CYCLOPHOSPHAMIDE [Suspect]
     Dosage: 2600 MG
  2. CYTARABINE [Suspect]
     Dosage: 5200 MG
  3. IFOSFAMIDE [Suspect]
     Dosage: 10500 MG
  4. LEUCOVORIN CALCIUM [Suspect]
     Dosage: 85 MG
  5. MESNA [Suspect]
     Dosage: 7620 MG
  6. METHOTREXATE [Suspect]
     Dosage: 3925 MG
  7. PREDNISONE TAB [Suspect]
     Dosage: 1120 MG
  8. RITUXIMAB (MOAB C2B8 ANTI CD20, CHIMERIC) [Suspect]
     Dosage: 1000 MG
  9. VINCRISTINE SULFATE [Suspect]
     Dosage: 2 MG
  10. ALLOPURINOL [Suspect]
     Dosage: 4200 MG

REACTIONS (17)
  - ABDOMINAL PAIN LOWER [None]
  - ARRHYTHMIA [None]
  - ASCITES [None]
  - BACTERIA BLOOD IDENTIFIED [None]
  - CARDIAC HYPERTROPHY [None]
  - CARDIO-RESPIRATORY ARREST [None]
  - CARDIOMEGALY [None]
  - CONGESTIVE CARDIOMYOPATHY [None]
  - DIZZINESS [None]
  - ENTEROBACTER INFECTION [None]
  - HYPOTENSION [None]
  - INFLAMMATION [None]
  - INTESTINAL PERFORATION [None]
  - LOSS OF CONSCIOUSNESS [None]
  - METABOLIC ACIDOSIS [None]
  - RESPIRATORY DISTRESS [None]
  - TACHYCARDIA [None]
